FAERS Safety Report 11881943 (Version 2)
Quarter: 2016Q1

REPORT INFORMATION
  Report Type: Spontaneous
  Country: PT (occurrence: PT)
  Receive Date: 20151231
  Receipt Date: 20160112
  Transmission Date: 20160526
  Serious: Yes (Other)
  Sender: FDA-Public Use
  Company Number: PT-PFIZER INC-2015464540

PATIENT
  Age: 53 Year
  Sex: Female

DRUGS (5)
  1. VITERNUM [Concomitant]
     Route: 048
  2. FAMPYRA [Interacting]
     Active Substance: DALFAMPRIDINE
     Indication: GAIT DISTURBANCE
     Dosage: 10 MG, 2X/DAY (12/12H)
     Route: 048
     Dates: start: 20151117, end: 20151215
  3. SOCIAN [Interacting]
     Active Substance: AMISULPRIDE
     Route: 048
  4. REBIF [Concomitant]
     Active Substance: INTERFERON BETA-1A
     Indication: MULTIPLE SCLEROSIS
     Dosage: 1 DF, ALTERNATE DAY
     Route: 058
     Dates: start: 20090206
  5. ALDACTONE [Suspect]
     Active Substance: SPIRONOLACTONE
     Indication: ALOPECIA
     Route: 048

REACTIONS (5)
  - Drug interaction [Unknown]
  - Balance disorder [Unknown]
  - Dizziness [Unknown]
  - Condition aggravated [Unknown]
  - Product use issue [Unknown]

NARRATIVE: CASE EVENT DATE: 20151117
